FAERS Safety Report 23919125 (Version 3)
Quarter: 2024Q2

REPORT INFORMATION
  Report Type: Spontaneous
  Country: CN (occurrence: CN)
  Receive Date: 20240530
  Receipt Date: 20240627
  Transmission Date: 20240715
  Serious: Yes (Other)
  Sender: FDA-Public Use
  Company Number: CN-MACLEODS PHARMA-MAC2024047377

PATIENT

DRUGS (1)
  1. SILDENAFIL [Suspect]
     Active Substance: SILDENAFIL
     Indication: Product used for unknown indication
     Dosage: EACH TIME/SEVERAL TIMES, DOSE OF SILDENAFIL WAS 100 MG EACH TIME
     Route: 065
     Dates: start: 202109

REACTIONS (3)
  - Choroidal effusion [Recovered/Resolved]
  - Angle closure glaucoma [Recovered/Resolved]
  - Intraocular pressure increased [Recovering/Resolving]
